FAERS Safety Report 8848021 (Version 2)
Quarter: 2015Q3

REPORT INFORMATION
  Report Type: Report from Study
  Country: JP (occurrence: JP)
  Receive Date: 20121018
  Receipt Date: 20150810
  Transmission Date: 20151125
  Serious: Yes (Hospitalization)
  Sender: FDA-Public Use
  Company Number: PHHY2012JP092314

PATIENT
  Age: 37 Year
  Sex: Female
  Weight: 60 kg

DRUGS (8)
  1. GILENYA [Suspect]
     Active Substance: FINGOLIMOD HYDROCHLORIDE
     Indication: MULTIPLE SCLEROSIS RELAPSE
     Dosage: 0.5 MG, QD
     Route: 048
     Dates: start: 20121002, end: 20121002
  2. DEPAKENE [Concomitant]
     Active Substance: VALPROIC ACID
     Indication: EPILEPSY
     Dosage: 4 DF, UNK
     Route: 048
  3. ALFAROL [Concomitant]
     Active Substance: ALFACALCIDOL
     Indication: OSTEOPOROSIS
     Dosage: 0.5 MG, UNK
     Route: 048
  4. SELBEX [Concomitant]
     Active Substance: TEPRENONE
     Indication: GASTRITIS
     Dosage: 3 DF, UNK
     Route: 048
  5. EBRANTIL [Concomitant]
     Active Substance: URAPIDIL
     Indication: DYSURIA
     Dosage: 1 DF, UNK
     Route: 048
  6. GASPORT [Concomitant]
     Active Substance: FAMOTIDINE
     Indication: PRODUCT USED FOR UNKNOWN INDICATION
     Route: 048
  7. BETAFERON [Concomitant]
     Active Substance: INTERFERON BETA-1B
     Indication: MULTIPLE SCLEROSIS
     Dosage: 1 DF, QMO (1 DF, QMO (800 X 10^4 UNITS))
     Route: 058
     Dates: start: 20000302, end: 20120930
  8. KEPPRA [Concomitant]
     Active Substance: LEVETIRACETAM
     Indication: EPILEPSY
     Dosage: 2 DF, UNK
     Route: 048

REACTIONS (4)
  - Blood pressure systolic decreased [Recovering/Resolving]
  - Atrioventricular block second degree [Recovered/Resolved]
  - Lymphocyte percentage decreased [Unknown]
  - Bradycardia [Recovering/Resolving]

NARRATIVE: CASE EVENT DATE: 20121002
